FAERS Safety Report 5078202-3 (Version None)
Quarter: 2006Q3

REPORT INFORMATION
  Report Type: 
  Country: None (occurrence: None)
  Receive Date: 20060811
  Receipt Date: 20060601
  Transmission Date: 20061208
  Serious: Yes (Hospitalization, Other)
  Sender: FDA-Public Use
  Company Number: BE-AMGEN-UK181645

PATIENT
  Sex: Male

DRUGS (7)
  1. PALIFERMIN [Suspect]
     Indication: MUCOSAL INFLAMMATION
     Route: 042
     Dates: start: 20060314, end: 20060322
  2. NEULASTA [Suspect]
     Indication: DRUG USE FOR UNKNOWN INDICATION
     Route: 058
     Dates: start: 20060321
  3. MAXIPIME [Suspect]
     Route: 065
  4. VINCRISTINE [Concomitant]
  5. DOXORUBICIN HYDROCHLORIDE [Concomitant]
  6. DEXAMETHASONE TAB [Concomitant]
  7. MELPHALAN [Concomitant]

REACTIONS (4)
  - DERMATITIS EXFOLIATIVE [None]
  - MACROGLOSSIA [None]
  - PRURITUS [None]
  - TONGUE DISORDER [None]
